FAERS Safety Report 19713500 (Version 1)
Quarter: 2021Q3

REPORT INFORMATION
  Report Type: Spontaneous
  Country: US (occurrence: US)
  Receive Date: 20210818
  Receipt Date: 20210818
  Transmission Date: 20211014
  Serious: No
  Sender: FDA-Public Use
  Company Number: US-JNJFOC-20210830680

PATIENT
  Age: 45 Year
  Sex: Female
  Weight: 69.85 kg

DRUGS (4)
  1. PREDNISONE. [Concomitant]
     Active Substance: PREDNISONE
     Indication: RASH PRURITIC
  2. ATARAX [Concomitant]
     Active Substance: HYDROXYZINE HYDROCHLORIDE
     Indication: RASH PRURITIC
     Dosage: 1? 2 TABLETS  ALTERNATING WITH CETIRIZINE OR BENADRYL
     Route: 065
  3. CETIRIZINE HYDROCHLORIDE. [Suspect]
     Active Substance: CETIRIZINE HYDROCHLORIDE
     Indication: RASH PRURITIC
     Route: 048
  4. COVID?19 VACCINE [Concomitant]
     Dosage: SECOND DOSE; LEFT ARM?SECOND DOSE: JAN 2021 ?LAST DOSE AND AROUND MAR 2021,
     Route: 065
     Dates: start: 20201222

REACTIONS (1)
  - Product use in unapproved indication [Unknown]

NARRATIVE: CASE EVENT DATE: 2021
